FAERS Safety Report 4745391-7 (Version None)
Quarter: 2005Q3

REPORT INFORMATION
  Report Type: 
  Country: None (occurrence: None)
  Receive Date: 20050812
  Receipt Date: 20050513
  Transmission Date: 20060218
  Serious: Yes (Other)
  Sender: FDA-Public Use
  Company Number: PHEH2005US05480

PATIENT
  Age: 76 Year
  Sex: Female
  Weight: 71.2147 kg

DRUGS (7)
  1. VISUDYNE [Suspect]
     Indication: MACULAR DEGENERATION
     Dosage: 10.2 MG DAILY IV
     Route: 042
     Dates: start: 20050310, end: 20050310
  2. PLAVIX [Concomitant]
  3. PRAVACHOL [Concomitant]
  4. DITROPAN [Concomitant]
  5. ACTONEL [Concomitant]
  6. ADVAIR DISKUS 100/50 [Concomitant]
  7. ASPIRIN [Concomitant]

REACTIONS (2)
  - RETINAL VEIN THROMBOSIS [None]
  - VISUAL ACUITY REDUCED [None]
